FAERS Safety Report 12209394 (Version 1)
Quarter: 2016Q1

REPORT INFORMATION
  Report Type: Spontaneous
  Country: US (occurrence: US)
  Receive Date: 20160324
  Receipt Date: 20160324
  Transmission Date: 20160526
  Serious: Yes (Hospitalization, Disabling)
  Sender: FDA-Public Use
  Company Number: US-ENDO PHARMACEUTICALS INC.-2016-001286

PATIENT
  Age: 66 Year
  Sex: Male
  Weight: 147.55 kg

DRUGS (3)
  1. FORTESTA [Suspect]
     Active Substance: TESTOSTERONE
     Indication: ANDROGEN REPLACEMENT THERAPY
     Route: 061
     Dates: start: 2012, end: 2016
  2. ANDROGEL [Suspect]
     Active Substance: TESTOSTERONE
     Indication: ANDROGEN REPLACEMENT THERAPY
     Route: 065
     Dates: start: 2012, end: 2016
  3. ANDRODERM [Suspect]
     Active Substance: TESTOSTERONE
     Indication: ANDROGEN REPLACEMENT THERAPY
     Route: 065
     Dates: start: 2012, end: 2016

REACTIONS (10)
  - Gout [Unknown]
  - Chronic kidney disease [Unknown]
  - Pulmonary mass [Unknown]
  - Arthralgia [Unknown]
  - Spinal pain [Unknown]
  - Pulmonary embolism [Not Recovered/Not Resolved]
  - Hypertension [Unknown]
  - Vision blurred [Unknown]
  - Headache [Unknown]
  - Arthropod bite [Unknown]

NARRATIVE: CASE EVENT DATE: 20140601
